FAERS Safety Report 8775414 (Version 2)
Quarter: 2012Q4

REPORT INFORMATION
  Report Type: 
  Country: SE (occurrence: SE)
  Receive Date: 20120910
  Receipt Date: 20120924
  Transmission Date: 20130627
  Serious: Yes (Hospitalization)
  Sender: FDA-Public Use
  Company Number: SE-ROCHE-1118365

PATIENT
  Age: 80 Year
  Sex: Male

DRUGS (1)
  1. MABTHERA [Suspect]
     Indication: RHEUMATOID ARTHRITIS
     Dosage: 1 GMN
     Route: 042
     Dates: start: 20100420, end: 20120828

REACTIONS (1)
  - Myelodysplastic syndrome [Unknown]
